FAERS Safety Report 4679329-8 (Version None)
Quarter: 2005Q2

REPORT INFORMATION
  Report Type: 
  Country: None (occurrence: None)
  Receive Date: 20050531
  Receipt Date: 20050518
  Transmission Date: 20051028
  Serious: Yes (Hospitalization)
  Sender: FDA-Public Use
  Company Number: B0376565A

PATIENT
  Age: 65 Year
  Sex: Male
  Weight: 118.8 kg

DRUGS (8)
  1. ZOVIRAX [Suspect]
     Indication: HERPES ZOSTER
     Dosage: 400 MG/ TWICE PER DAY / ORAL
     Route: 048
     Dates: start: 20050328, end: 20050401
  2. VERAPAMIL HYDROCHLORIDE [Concomitant]
  3. TEPRENONE [Concomitant]
  4. MAGNEISUM OXIDE [Concomitant]
  5. RANITIDINE HYDROCHLORIDE [Concomitant]
  6. RISPERIDONE [Concomitant]
  7. PREDONINE [Concomitant]
  8. BROTIZOLAM` [Concomitant]

REACTIONS (2)
  - CONDITION AGGRAVATED [None]
  - DELIRIUM [None]
